FAERS Safety Report 16087436 (Version 4)
Quarter: 2019Q1

REPORT INFORMATION
  Report Type: Report from Study
  Country: US (occurrence: US)
  Receive Date: 20190319
  Receipt Date: 20190327
  Transmission Date: 20190418
  Serious: No
  Sender: FDA-Public Use
  Company Number: PHEH2019US012006

PATIENT
  Age: 27 Year
  Sex: Female
  Weight: 56.69 kg

DRUGS (1)
  1. GLATOPA [Suspect]
     Active Substance: GLATIRAMER ACETATE
     Indication: MULTIPLE SCLEROSIS
     Dosage: 20 MG, QD (ROTATING SITES)
     Route: 058
     Dates: start: 20190307

REACTIONS (10)
  - Incorrect route of product administration [Unknown]
  - Headache [Recovering/Resolving]
  - Gait disturbance [Recovering/Resolving]
  - Injection site pain [Not Recovered/Not Resolved]
  - Injection site discomfort [Not Recovered/Not Resolved]
  - Injection site swelling [Not Recovered/Not Resolved]
  - Injection site mass [Not Recovered/Not Resolved]
  - Injection site erythema [Not Recovered/Not Resolved]
  - Neck pain [Recovering/Resolving]
  - Injection site urticaria [Not Recovered/Not Resolved]

NARRATIVE: CASE EVENT DATE: 20190307
